FAERS Safety Report 25818468 (Version 2)
Quarter: 2025Q3

REPORT INFORMATION
  Report Type: Spontaneous
  Country: IL (occurrence: IL)
  Receive Date: 20250918
  Receipt Date: 20250925
  Transmission Date: 20251021
  Serious: Yes (Hospitalization)
  Sender: PFIZER
  Company Number: IL-MLMSERVICE-20250905-PI638110-00336-1

PATIENT
  Age: 35 Year
  Sex: Female

DRUGS (4)
  1. ZOLEDRONIC ACID [Suspect]
     Active Substance: ZOLEDRONIC ACID
     Indication: Metastases to bone
     Route: 042
  2. LANREOTIDE [Concomitant]
     Active Substance: LANREOTIDE
     Indication: Metastases to bone
     Dates: start: 202208
  3. LANREOTIDE [Concomitant]
     Active Substance: LANREOTIDE
     Indication: Phaeochromocytoma
  4. LEVOTHYROXINE [Concomitant]
     Active Substance: LEVOTHYROXINE
     Indication: Thyroid cancer
     Dates: start: 2021

REACTIONS (1)
  - Myocarditis [Recovered/Resolved]
